FAERS Safety Report 9962904 (Version 1)
Quarter: 2014Q1

REPORT INFORMATION
  Report Type: Report from Study
  Country: US (occurrence: US)
  Receive Date: 20140305
  Receipt Date: 20140305
  Transmission Date: 20141002
  Serious: No
  Sender: FDA-Public Use
  Company Number: US-ABBVIE-13P-163-1113950-00

PATIENT
  Age: 56 Year
  Sex: Female

DRUGS (6)
  1. HUMIRA [Suspect]
     Indication: CROHN^S DISEASE
     Dates: start: 20130616, end: 20130616
  2. HUMIRA [Suspect]
     Dates: start: 20130617
  3. POTASSIUM CHLORIDE [Concomitant]
     Indication: HYPOKALAEMIA
     Dosage: 20 MEQ 2 DAILY
  4. VENLAFAXINE HCL ER [Concomitant]
     Indication: DEPRESSION
  5. B12 [Concomitant]
     Indication: CROHN^S DISEASE
  6. BUSPIRONE HCL [Concomitant]
     Indication: ANXIETY
     Dosage: 7.5 MG TWICE DAILY

REACTIONS (1)
  - Injection site pain [Recovered/Resolved]
